FAERS Safety Report 10004629 (Version 1)
Quarter: 2014Q1

REPORT INFORMATION
  Report Type: Spontaneous
  Country: US (occurrence: US)
  Receive Date: 20140312
  Receipt Date: 20140312
  Transmission Date: 20141002
  Serious: No
  Sender: FDA-Public Use
  Company Number: US-INCYTE CORPORATION-2013IN003046

PATIENT
  Age: 64 Year
  Sex: Male
  Weight: 78 kg

DRUGS (10)
  1. JAKAFI [Suspect]
     Indication: MYELOFIBROSIS
     Dosage: 20 MG, BID
     Route: 048
     Dates: start: 201312
  2. SYNTHROID [Concomitant]
  3. DICLOFENAC [Concomitant]
     Dosage: 100 MG, UNK
  4. CITALOPRAM [Concomitant]
     Dosage: 20 MG, UNK
  5. METFORMIN HCL [Concomitant]
     Dosage: 1000 MG, UNK
  6. LISINOPRIL HCTZ [Concomitant]
     Dosage: 20 MG - 12.5 MG
  7. ASPIRIN (E.C.) [Concomitant]
     Dosage: 81 MG, UNK
  8. ALLOPURINOL [Concomitant]
     Dosage: 100 MG, UNK
  9. CLARITIN                           /00413701/ [Concomitant]
  10. ZINC [Concomitant]

REACTIONS (1)
  - Diarrhoea [Recovered/Resolved]
